FAERS Safety Report 5145930-0 (Version None)
Quarter: 2006Q4

REPORT INFORMATION
  Report Type: 
  Country: None (occurrence: None)
  Receive Date: 20061108
  Receipt Date: 20061101
  Transmission Date: 20070319
  Serious: Yes (Other)
  Sender: FDA-Public Use
  Company Number: 2006UW21452

PATIENT
  Age: 62 Year
  Sex: Male

DRUGS (3)
  1. NEXIUM [Suspect]
     Route: 048
  2. CELEBREX [Suspect]
     Route: 048
  3. TRAZODONE HCL [Suspect]

REACTIONS (10)
  - BLOOD CREATININE INCREASED [None]
  - BLOOD PRESSURE INCREASED [None]
  - BLOOD UREA INCREASED [None]
  - FACE OEDEMA [None]
  - FATIGUE [None]
  - GLOMERULONEPHRITIS [None]
  - KIDNEY FIBROSIS [None]
  - OEDEMA PERIPHERAL [None]
  - PROTEINURIA [None]
  - RENAL TUBULAR NECROSIS [None]
